FAERS Safety Report 6673821-2 (Version None)
Quarter: 2010Q2

REPORT INFORMATION
  Report Type: 
  Country: None (occurrence: None)
  Receive Date: 20100407
  Receipt Date: 20100401
  Transmission Date: 20101027
  Serious: Yes (Other)
  Sender: FDA-Public Use
  Company Number: 2110898-2010-00036

PATIENT
  Sex: Male

DRUGS (1)
  1. 3M ESPE PERIOMED 0.63% STANNOUS FLUORIDE ORAL RINSE CONCENTRATE, MINT [Suspect]
     Dosage: TOPICAL, ORAL RINSE
     Route: 061

REACTIONS (1)
  - TENDON RUPTURE [None]
